FAERS Safety Report 4318402-0 (Version None)
Quarter: 2004Q1

REPORT INFORMATION
  Report Type: 
  Country: None (occurrence: None)
  Receive Date: 20040315
  Receipt Date: 20040303
  Transmission Date: 20041129
  Serious: Yes (Hospitalization)
  Sender: FDA-Public Use
  Company Number: DE-JNJFOC-20040301613

PATIENT
  Age: 56 Year
  Sex: Female

DRUGS (8)
  1. RISPERDAL [Suspect]
     Indication: MAJOR DEPRESSION
     Dosage: SEE IMAGE
     Route: 048
     Dates: start: 20030710, end: 20030714
  2. RISPERDAL [Suspect]
     Indication: MAJOR DEPRESSION
     Dosage: SEE IMAGE
     Route: 048
     Dates: start: 20030708
  3. RISPERDAL [Suspect]
     Indication: MAJOR DEPRESSION
     Dosage: SEE IMAGE
     Route: 048
     Dates: start: 20030709
  4. MIRTAZAPINE [Suspect]
     Indication: DRUG USE FOR UNKNOWN INDICATION
     Dosage: SEE IMAGE
     Route: 048
     Dates: start: 20030610, end: 20030617
  5. MIRTAZAPINE [Suspect]
     Indication: DRUG USE FOR UNKNOWN INDICATION
     Dosage: SEE IMAGE
     Route: 048
     Dates: start: 20030618, end: 20030707
  6. MIRTAZAPINE [Suspect]
     Indication: DRUG USE FOR UNKNOWN INDICATION
     Dosage: SEE IMAGE
     Route: 048
     Dates: start: 20030708, end: 20030710
  7. LORAZEPAM [Suspect]
     Dosage: IN  1 DAY, ORAL
     Route: 048
     Dates: end: 20030710
  8. REBOXETINE MESYLATE [Suspect]
     Dosage: 4 MG, IN  1 DAY, ORAL
     Route: 048
     Dates: start: 20030618, end: 20030708

REACTIONS (4)
  - DEPRESSION [None]
  - DRUG INTERACTION [None]
  - HYPOTONIC URINARY BLADDER [None]
  - URINARY RETENTION [None]
